FAERS Safety Report 8347576-X (Version None)
Quarter: 2012Q2

REPORT INFORMATION
  Report Type: 
  Country: None (occurrence: None)
  Receive Date: 20120509
  Receipt Date: 20120427
  Transmission Date: 20120825
  Serious: Yes (Disabling)
  Sender: FDA-Public Use
  Company Number: GB-TEVA-335195ISR

PATIENT
  Age: 66 Year
  Sex: Male
  Weight: 105 kg

DRUGS (9)
  1. LEVOTHYROXINE SODIUM [Concomitant]
     Dates: start: 20120103
  2. PERINDOPRIL ERBUMINE [Concomitant]
     Dates: start: 20120103
  3. DIAZEPAM [Concomitant]
     Dates: start: 20120103
  4. MOXONIDINE [Concomitant]
     Dates: start: 20120103
  5. BENDROFLUMETHIAZIDE [Concomitant]
     Dates: start: 20120103
  6. TOPIRAMATE [Concomitant]
     Dates: start: 20120105
  7. IRBESARTAN [Concomitant]
     Dates: start: 20120103
  8. DIHYDROCODEINE BITARTRATE INJ [Concomitant]
     Dates: start: 20120105
  9. AMLODIPINE [Suspect]
     Dates: start: 20120229

REACTIONS (4)
  - FATIGUE [None]
  - PALPITATIONS [None]
  - TREMOR [None]
  - LETHARGY [None]
